FAERS Safety Report 8276669-0 (Version None)
Quarter: 2012Q2

REPORT INFORMATION
  Report Type: 
  Country: None (occurrence: None)
  Receive Date: 20120412
  Receipt Date: 20120412
  Transmission Date: 20120825
  Serious: Yes (Hospitalization)
  Sender: FDA-Public Use
  Company Number: None

PATIENT
  Age: 74 Year
  Sex: Female
  Weight: 114 kg

DRUGS (9)
  1. ASPIRIN [Concomitant]
     Route: 048
  2. AMLODIPINE [Concomitant]
     Route: 048
  3. TERAZOSIN HCL [Concomitant]
     Route: 048
  4. HUMULIN 70/30 [Concomitant]
     Route: 058
  5. LOVASTATIN [Concomitant]
     Route: 048
  6. LISINOPRIL [Suspect]
     Indication: HYPERTENSION
     Dosage: UNKNOWN
     Route: 048
  7. ALLOPURINOL [Concomitant]
     Route: 048
  8. HYDROCHLOROTHIAZIDE [Concomitant]
     Route: 048
  9. HUMULIN 70/30 [Concomitant]
     Route: 058

REACTIONS (2)
  - SPEECH DISORDER [None]
  - ANGIOEDEMA [None]
